FAERS Safety Report 7537843-1 (Version None)
Quarter: 2011Q2

REPORT INFORMATION
  Report Type: 
  Country: None (occurrence: None)
  Receive Date: 20110609
  Receipt Date: 20110608
  Transmission Date: 20111010
  Serious: Yes (Other)
  Sender: FDA-Public Use
  Company Number: ZA-ABBOTT-10P-143-0691126-00

PATIENT
  Sex: Male
  Weight: 14.5 kg

DRUGS (3)
  1. NITROUS OXIDE [Concomitant]
  2. ULTANE [Suspect]
     Indication: INDUCTION OF ANAESTHESIA
     Dates: start: 20101201, end: 20101201
  3. OXYGEN [Concomitant]
     Indication: INDUCTION OF ANAESTHESIA
     Dates: start: 20101201, end: 20101201

REACTIONS (1)
  - TONIC CLONIC MOVEMENTS [None]
